FAERS Safety Report 12457875 (Version 1)
Quarter: 2016Q2

REPORT INFORMATION
  Report Type: Spontaneous
  Country: US (occurrence: US)
  Receive Date: 20160612
  Receipt Date: 20160612
  Transmission Date: 20160815
  Serious: No
  Sender: FDA-Public Use
  Company Number: US-009507513-1606USA002622

PATIENT
  Age: 46 Year
  Sex: Female
  Weight: 83.45 kg

DRUGS (1)
  1. ZOCOR [Suspect]
     Active Substance: SIMVASTATIN
     Indication: BLOOD CHOLESTEROL INCREASED

REACTIONS (3)
  - Haemorrhage [Unknown]
  - Contusion [Unknown]
  - Laceration [Unknown]

NARRATIVE: CASE EVENT DATE: 201604
